FAERS Safety Report 17151279 (Version 1)
Quarter: 2019Q4

REPORT INFORMATION
  Report Type: Spontaneous
  Country: US (occurrence: US)
  Receive Date: 20191213
  Receipt Date: 20191213
  Transmission Date: 20200122
  Serious: No
  Sender: FDA-Public Use
  Company Number: US-PFIZER INC-2019536794

PATIENT
  Age: 9 Year
  Sex: Male

DRUGS (1)
  1. JUNIOR STRENGTH ADVIL [Suspect]
     Active Substance: IBUPROFEN
     Indication: TOOTHACHE
     Dosage: UNK [2 CHEWABLES THE FIRST TIME, AND THEN A THIRD CHEWABLE]
     Dates: start: 20191210

REACTIONS (1)
  - Therapeutic product effect incomplete [Unknown]
